FAERS Safety Report 16032176 (Version 1)
Quarter: 2019Q1

REPORT INFORMATION
  Report Type: Other
  Country: None (occurrence: US)
  Receive Date: 20190304
  Receipt Date: 20190304
  Transmission Date: 20190418
  Serious: Yes (Death, Life-Threatening, Hospitalization)
  Sender: FDA-Public Use
  Company Number: US-MEDAC PHARMA, INC.-2063532

PATIENT
  Age: 36 Year
  Sex: Female
  Weight: 134.4 kg

DRUGS (6)
  1. DAUNORUBICIN HYDROCHLORIDE. [Suspect]
     Active Substance: DAUNORUBICIN HYDROCHLORIDE
  2. PEGASPARGASE [Suspect]
     Active Substance: PEGASPARGASE
  3. DEXAMETHASONE. [Suspect]
     Active Substance: DEXAMETHASONE
  4. METHOTREXATE. [Suspect]
     Active Substance: METHOTREXATE
  5. VINCRISTINE SULFATE. [Suspect]
     Active Substance: VINCRISTINE SULFATE
  6. CYTARABINE. [Suspect]
     Active Substance: CYTARABINE

REACTIONS (26)
  - Streptococcus test positive [Unknown]
  - Aspiration [Unknown]
  - Rectal haemorrhage [Unknown]
  - Cerebral haemorrhage [Fatal]
  - Enterococcus test positive [Unknown]
  - Sepsis [Fatal]
  - Somnolence [Unknown]
  - Epistaxis [Unknown]
  - Blood bilirubin increased [Unknown]
  - Drug-induced liver injury [Unknown]
  - Vascular device infection [Fatal]
  - Pulse absent [Fatal]
  - Pyrexia [Unknown]
  - Thrombocytopenia [Unknown]
  - Cholestasis [Unknown]
  - Cough [Unknown]
  - Choking [Unknown]
  - Catheter site haemorrhage [Unknown]
  - Hepatic enzyme increased [Unknown]
  - Hypotension [Fatal]
  - Therapy non-responder [Unknown]
  - Endotracheal intubation complication [Unknown]
  - Respiratory tract haemorrhage [Unknown]
  - Acute kidney injury [Unknown]
  - Blood culture positive [Unknown]
  - Non-alcoholic steatohepatitis [Unknown]

NARRATIVE: CASE EVENT DATE: 20180924
